FAERS Safety Report 9057601 (Version 2)
Quarter: 2013Q1

REPORT INFORMATION
  Report Type: Spontaneous
  Country: US (occurrence: US)
  Receive Date: 20130204
  Receipt Date: 20130306
  Transmission Date: 20140127
  Serious: No
  Sender: FDA-Public Use
  Company Number: US-PFIZER INC-2013040718

PATIENT
  Age: 79 Year
  Sex: Male
  Weight: 84.81 kg

DRUGS (18)
  1. SUTENT [Suspect]
     Indication: METASTATIC RENAL CELL CARCINOMA
     Dosage: 50 MG, CYCLIC (4 WEEKS ON, 2 WEEKS OFF)
     Route: 048
     Dates: start: 20130114, end: 20130115
  2. SUTENT [Suspect]
     Dosage: 37.5 MG, CYCLIC (4 WEEKS ON, 2 WEEKS OFF)
     Route: 048
  3. ALLOPURINOL [Concomitant]
     Dosage: 100 MG, 1X/DAY
     Route: 048
  4. LANTUS SOLO STAR [Concomitant]
     Dosage: UNK
  5. BUPROPION HYDROCHLORIDE [Concomitant]
     Dosage: 75 MG, 1X/DAY
     Route: 048
  6. LASIX [Concomitant]
     Indication: OEDEMA PERIPHERAL
     Dosage: 40 MG IN THE MORNING AND 20 MG IN THE EVENING
     Route: 048
  7. CENTRUM [Concomitant]
     Dosage: UNK
  8. NIFEDIPINE [Concomitant]
     Dosage: 20 MG, 3X/DAY
     Route: 048
  9. DOXAZOSIN MESILATE [Concomitant]
     Dosage: 4 MG, 1X/DAY (QPM)
     Route: 048
  10. PHENERGAN [Concomitant]
     Dosage: UNK
  11. GLIPIZIDE [Concomitant]
     Dosage: 5 MG, TAKE 2 PO BID (TAKE 2 QAM AND 1 QPM)
     Route: 048
  12. SIMVASTATIN [Concomitant]
     Dosage: 80 MG, TAKE 1 PO DAILY (0.5 TABLET ON T, F)
     Route: 048
  13. HYDROCODONE W/ACETAMINOPHEN [Concomitant]
     Indication: PAIN
     Dosage: 5 MG-500MG TABLET(S) TAKE 1 PO Q4H PRN
     Route: 048
  14. CENTRUM SILVER [Concomitant]
     Dosage: 1 DF, 1X/DAY
     Route: 048
  15. CALCIUM CARBONATE [Concomitant]
     Dosage: 500(1250) TABLET TAKE 1 PO BID
     Route: 048
  16. FLUOXETINE HYDROCHLORIDE [Concomitant]
     Dosage: 20 MG, 3X/DAY
     Route: 048
  17. INSULIN GLULISINE [Concomitant]
     Dosage: 10 IU, 1X/DAY
     Route: 058
  18. PROMETHAZINE HYDROCHLORIDE [Concomitant]
     Indication: NAUSEA
     Dosage: 25 MG, (TAKE ONE TABLET BY MOUTH EVERY 6 HOURS AS NEEDED)
     Route: 048

REACTIONS (7)
  - Fall [Unknown]
  - Asthenia [Unknown]
  - Fatigue [Unknown]
  - Chills [Unknown]
  - Nausea [Recovering/Resolving]
  - Vomiting [Unknown]
  - Back pain [Unknown]
